FAERS Safety Report 8197448-9 (Version None)
Quarter: 2012Q1

REPORT INFORMATION
  Report Type: 
  Country: None (occurrence: None)
  Receive Date: 20120309
  Receipt Date: 20120305
  Transmission Date: 20120608
  Serious: Yes (Hospitalization, Other)
  Sender: FDA-Public Use
  Company Number: CL-ROCHE-1029697

PATIENT
  Sex: Male
  Weight: 61 kg

DRUGS (1)
  1. XELODA [Suspect]
     Indication: COLON CANCER
     Dosage: 1000 MG IN MORNING AND 1000 MG AT NIGHT
     Route: 048
     Dates: start: 20110826, end: 20120104

REACTIONS (6)
  - ABDOMINAL DISTENSION [None]
  - ABDOMINAL PAIN [None]
  - VOMITING [None]
  - INTESTINAL OBSTRUCTION [None]
  - DEHYDRATION [None]
  - DIARRHOEA [None]
